FAERS Safety Report 17549531 (Version 2)
Quarter: 2020Q2

REPORT INFORMATION
  Report Type: Spontaneous
  Country: US (occurrence: US)
  Receive Date: 20200317
  Receipt Date: 20200408
  Transmission Date: 20200713
  Serious: Yes (Hospitalization)
  Sender: FDA-Public Use
  Company Number: US-GLAXOSMITHKLINE-US2020042739

PATIENT
  Sex: Female

DRUGS (1)
  1. BREO ELLIPTA [Suspect]
     Active Substance: FLUTICASONE FUROATE\VILANTEROL TRIFENATATE
     Indication: PRODUCT USED FOR UNKNOWN INDICATION
     Dosage: UNK
     Route: 055
     Dates: start: 2018

REACTIONS (6)
  - Product dose omission [Unknown]
  - Hypoacusis [Not Recovered/Not Resolved]
  - Feeling abnormal [Unknown]
  - Product complaint [Unknown]
  - Gait inability [Recovered/Resolved]
  - Neurological symptom [Not Recovered/Not Resolved]
